FAERS Safety Report 10472785 (Version 3)
Quarter: 2014Q4

REPORT INFORMATION
  Report Type: Spontaneous
  Country: JP (occurrence: JP)
  Receive Date: 20140924
  Receipt Date: 20141014
  Transmission Date: 20150528
  Serious: Yes (Other)
  Sender: FDA-Public Use
  Company Number: JP-JNJFOC-20140919893

PATIENT
  Age: 63 Year
  Sex: Male
  Weight: 51 kg

DRUGS (4)
  1. PROGRAF [Concomitant]
     Active Substance: TACROLIMUS\TACROLIMUS ANHYDROUS
     Indication: RHEUMATIC DISORDER
     Route: 065
  2. TRAMCET [Suspect]
     Active Substance: ACETAMINOPHEN\TRAMADOL
     Indication: PAIN
     Dosage: 3 TIMES A DAY
     Route: 048
     Dates: start: 20130610, end: 20130617
  3. VFEND [Interacting]
     Active Substance: VORICONAZOLE
     Indication: BRONCHOPULMONARY ASPERGILLOSIS
     Dosage: TWICE A DAY
     Route: 042
     Dates: start: 20130611, end: 20130618
  4. NORVASC [Concomitant]
     Active Substance: AMLODIPINE BESYLATE
     Indication: HYPERTENSION
     Route: 048

REACTIONS (5)
  - Delirium [Recovered/Resolved]
  - Hallucination, visual [Unknown]
  - Confusional state [Unknown]
  - Hallucination, auditory [Unknown]
  - Drug interaction [Unknown]

NARRATIVE: CASE EVENT DATE: 20130614
